FAERS Safety Report 6062534-6 (Version None)
Quarter: 2009Q1

REPORT INFORMATION
  Report Type: 
  Country: None (occurrence: None)
  Receive Date: 20090202
  Receipt Date: 20090202
  Transmission Date: 20090719
  Serious: Yes (Life-Threatening)
  Sender: FDA-Public Use
  Company Number: None

PATIENT
  Age: 70 Year
  Sex: Male
  Weight: 91.3998 kg

DRUGS (2)
  1. METOPROLOL TARTRATE [Suspect]
     Indication: ARRHYTHMIA
     Dates: start: 20090128, end: 20090130
  2. TOPROL-XL [Suspect]

REACTIONS (3)
  - DYSPNOEA [None]
  - FATIGUE [None]
  - PRODUCT QUALITY ISSUE [None]
